FAERS Safety Report 19565109 (Version 1)
Quarter: 2021Q3

REPORT INFORMATION
  Report Type: Spontaneous
  Country: JP (occurrence: JP)
  Receive Date: 20210716
  Receipt Date: 20210716
  Transmission Date: 20211014
  Serious: Yes (Hospitalization)
  Sender: FDA-Public Use
  Company Number: JP-STRIDES ARCOLAB LIMITED-2021SP024983

PATIENT
  Sex: Female

DRUGS (4)
  1. ACETAZOLAMIDE. [Suspect]
     Active Substance: ACETAZOLAMIDE
     Dosage: 125 MILLIGRAM;WAS REDUCED TO 125MG ON DAY43, AND ACETAZOLAMIDE WAS DISCONTINUED ON DAY55
     Route: 065
  2. LAMOTRIGINE. [Concomitant]
     Active Substance: LAMOTRIGINE
     Indication: EPILEPSY
     Dosage: BLOOD LEVEL 4.75 MCG/ML; TAKEN TWICE DAILY IN EQUALLY DIVIDED DOSES.
     Route: 065
  3. PHENOBARBITAL. [Concomitant]
     Active Substance: PHENOBARBITAL
     Indication: EPILEPSY
     Dosage: BLOOD LEVEL 19.7MCG/ML; TAKEN TWICE DAILY IN EQUALLY DIVIDED DOSES.
     Route: 065
  4. ACETAZOLAMIDE. [Suspect]
     Active Substance: ACETAZOLAMIDE
     Indication: EPILEPSY
     Dosage: 250 MILLIGRAM, BID; BLOOD LEVEL 12.8MCG/ML; TAKEN TWICE DAILY IN EQUALLY DIVIDED DOSES
     Route: 065

REACTIONS (7)
  - Constipation [Recovered/Resolved]
  - Aerophagia [Recovered/Resolved]
  - Metabolic acidosis [Recovered/Resolved]
  - Irritability [Unknown]
  - Abdominal distension [Recovered/Resolved]
  - Impaired gastric emptying [Recovered/Resolved]
  - Nausea [Unknown]
